FAERS Safety Report 21243978 (Version 3)
Quarter: 2022Q4

REPORT INFORMATION
  Report Type: Spontaneous
  Country: US (occurrence: US)
  Receive Date: 20220823
  Receipt Date: 20221223
  Transmission Date: 20230112
  Serious: Yes (Hospitalization)
  Sender: FDA-Public Use
  Company Number: US-BRISTOL-MYERS SQUIBB COMPANY-2022-091988

PATIENT
  Age: 79 Year
  Sex: Female
  Weight: 98.88 kg

DRUGS (2)
  1. REVLIMID [Suspect]
     Active Substance: LENALIDOMIDE
     Indication: Plasma cell myeloma
     Dosage: 14D ON 7D OFF
     Route: 048
     Dates: start: 20220728, end: 20220810
  2. REVLIMID [Suspect]
     Active Substance: LENALIDOMIDE
     Dosage: 2W, 1W OFF
     Route: 048
     Dates: start: 20220701

REACTIONS (4)
  - Renal disorder [Recovering/Resolving]
  - Off label use [Unknown]
  - Abdominal pain upper [Not Recovered/Not Resolved]
  - Diarrhoea [Not Recovered/Not Resolved]
